FAERS Safety Report 16142883 (Version 1)
Quarter: 2019Q2

REPORT INFORMATION
  Report Type: Spontaneous
  Country: SE (occurrence: SE)
  Receive Date: 20190401
  Receipt Date: 20190401
  Transmission Date: 20190711
  Serious: Yes (Other)
  Sender: FDA-Public Use
  Company Number: SE-MYLANLABS-2019M1028742

PATIENT
  Sex: Male

DRUGS (21)
  1. LYRICA [Concomitant]
     Active Substance: PREGABALIN
     Indication: PANIC ATTACK
  2. OXYCODONE W/PARACETAMOL [Concomitant]
     Active Substance: ACETAMINOPHEN\OXYCODONE HYDROCHLORIDE
     Indication: BACK INJURY
     Dosage: UNK
     Route: 065
     Dates: start: 201408
  3. ALPRAZOLAM. [Concomitant]
     Active Substance: ALPRAZOLAM
     Indication: ANXIETY DISORDER
     Dosage: 2 MILLIGRAM, BID (4 MG, QD)
     Route: 065
     Dates: start: 201405
  4. PROPAVAN [Concomitant]
     Active Substance: PROPIOMAZINE
     Indication: INSOMNIA
     Dosage: UNK
     Route: 065
  5. TOUJEO [Concomitant]
     Active Substance: INSULIN GLARGINE
     Dosage: 20 DOSAGE FORM, QD, 20 U, QD
     Route: 065
     Dates: start: 201710
  6. LYRICA [Concomitant]
     Active Substance: PREGABALIN
     Indication: ANXIETY DISORDER
     Dosage: UNK
     Route: 065
  7. ALPRAZOLAM. [Concomitant]
     Active Substance: ALPRAZOLAM
     Indication: PANIC ATTACK
     Dosage: UNK
     Route: 065
  8. ALPRAZOLAM. [Concomitant]
     Active Substance: ALPRAZOLAM
     Indication: DEPRESSION
  9. OMEPRAZOLE. [Concomitant]
     Active Substance: OMEPRAZOLE
     Indication: PRODUCT USED FOR UNKNOWN INDICATION
     Dosage: UNK
     Route: 065
     Dates: start: 201407
  10. TOUJEO [Concomitant]
     Active Substance: INSULIN GLARGINE
     Indication: PRODUCT USED FOR UNKNOWN INDICATION
     Dosage: 20 DOSAGE FORM, QD,20 U, QD
     Route: 065
     Dates: start: 201709
  11. LAXIDO [Concomitant]
     Active Substance: POLYETHYLENE GLYCOL 3350\POTASSIUM CHLORIDE\SODIUM BICARBONATE\SODIUM CHLORIDE
     Indication: PRODUCT USED FOR UNKNOWN INDICATION
     Dosage: UNK, PRN
     Route: 065
     Dates: start: 201407
  12. ZOLPIDEM [Concomitant]
     Active Substance: ZOLPIDEM\ZOLPIDEM TARTRATE
     Indication: INSOMNIA
     Dosage: UNK
     Route: 065
     Dates: start: 201201
  13. METFORMIN [Suspect]
     Active Substance: METFORMIN HYDROCHLORIDE
     Indication: TYPE 2 DIABETES MELLITUS
     Dosage: 1000 MG, BID (2000 MG, QD)
     Route: 065
     Dates: start: 201407
  14. NARDIL [Interacting]
     Active Substance: PHENELZINE SULFATE
     Indication: ANXIETY DISORDER
     Dosage: UNK
     Route: 065
  15. SIMVASTATIN. [Concomitant]
     Active Substance: SIMVASTATIN
     Indication: LIPIDS INCREASED
     Dosage: UNK
     Route: 065
     Dates: start: 201407
  16. FUROSEMIDE. [Concomitant]
     Active Substance: FUROSEMIDE
     Indication: POLYURIA
     Dosage: UNK
     Route: 065
     Dates: start: 201709
  17. LYRICA [Concomitant]
     Active Substance: PREGABALIN
     Indication: DEPRESSION
  18. ENALAPRIL                          /00574902/ [Suspect]
     Active Substance: ENALAPRIL
     Indication: HYPERTENSION
     Dosage: 10 MG, BID (20 MG,QD)
     Route: 065
  19. NARDIL [Interacting]
     Active Substance: PHENELZINE SULFATE
     Indication: DEPRESSION
     Dosage: 30 MILLIGRAM, TID (90 MG,QD)
     Route: 065
     Dates: start: 201706
  20. NARDIL [Interacting]
     Active Substance: PHENELZINE SULFATE
     Indication: PANIC ATTACK
  21. JARDIANCE [Concomitant]
     Active Substance: EMPAGLIFLOZIN
     Indication: TYPE 2 DIABETES MELLITUS
     Dosage: UNK
     Route: 065
     Dates: start: 201709

REACTIONS (6)
  - Fall [Recovering/Resolving]
  - Syncope [Recovering/Resolving]
  - Dizziness [Unknown]
  - Hypotension [Unknown]
  - Drug interaction [Unknown]
  - Weight increased [Not Recovered/Not Resolved]

NARRATIVE: CASE EVENT DATE: 20170702
